FAERS Safety Report 16444681 (Version 3)
Quarter: 2019Q3

REPORT INFORMATION
  Report Type: Spontaneous
  Country: US (occurrence: US)
  Receive Date: 20190618
  Receipt Date: 20190905
  Transmission Date: 20191004
  Serious: No
  Sender: FDA-Public Use
  Company Number: US-TEVA-2019-US-1065289

PATIENT
  Sex: Male
  Weight: 84 kg

DRUGS (6)
  1. THORAZINE [Concomitant]
     Active Substance: CHLORPROMAZINE
     Indication: MIGRAINE
  2. AMYTRIPTYLINE [Concomitant]
     Indication: SLEEP DISORDER
  3. AJOVY [Suspect]
     Active Substance: FREMANEZUMAB-VFRM
     Indication: MIGRAINE
     Dosage: MONTHLY INJECTION
     Dates: start: 201901
  4. LISINOPRIL. [Concomitant]
     Active Substance: LISINOPRIL
     Indication: HYPERTENSION
  5. METHERGINE [Concomitant]
     Active Substance: METHYLERGONOVINE MALEATE
     Indication: MIGRAINE
  6. DIHYDROERGOTAMINE [Concomitant]
     Active Substance: DIHYDROERGOTAMINE
     Indication: MIGRAINE

REACTIONS (2)
  - Pain [Unknown]
  - Therapeutic response shortened [Unknown]
